FAERS Safety Report 16483862 (Version 2)
Quarter: 2020Q1

REPORT INFORMATION
  Report Type: Spontaneous
  Country: US (occurrence: US)
  Receive Date: 20190627
  Receipt Date: 20200106
  Transmission Date: 20200409
  Serious: Yes (Hospitalization, Disabling, Other)
  Sender: FDA-Public Use
  Company Number: US-JNJFOC-20190625499

PATIENT
  Age: 50 Year
  Sex: Male

DRUGS (1)
  1. INVOKANA [Suspect]
     Active Substance: CANAGLIFLOZIN
     Indication: TYPE 2 DIABETES MELLITUS
     Route: 048
     Dates: end: 20170926

REACTIONS (6)
  - Leg amputation [Unknown]
  - Neuropathic arthropathy [Recovering/Resolving]
  - Cellulitis [Recovering/Resolving]
  - Toe amputation [Unknown]
  - Osteomyelitis chronic [Recovering/Resolving]
  - Diabetic foot infection [Recovering/Resolving]

NARRATIVE: CASE EVENT DATE: 201503
